FAERS Safety Report 21408407 (Version 4)
Quarter: 2023Q1

REPORT INFORMATION
  Report Type: Report from Study
  Country: US (occurrence: US)
  Receive Date: 20221004
  Receipt Date: 20230221
  Transmission Date: 20230417
  Serious: Yes (Other)
  Sender: FDA-Public Use
  Company Number: US-BIOVITRUM-2022US11291

PATIENT
  Sex: Female

DRUGS (2)
  1. KINERET [Suspect]
     Active Substance: ANAKINRA
     Indication: Rheumatoid arthritis
     Dates: start: 20211124
  2. KINERET [Suspect]
     Active Substance: ANAKINRA
     Dosage: 100 MG/0.67ML

REACTIONS (4)
  - Renal failure [Unknown]
  - Haemolytic anaemia [Unknown]
  - Drug hypersensitivity [Unknown]
  - Drug ineffective [Unknown]
